FAERS Safety Report 7398996-1 (Version None)
Quarter: 2011Q2

REPORT INFORMATION
  Report Type: 
  Country: None (occurrence: None)
  Receive Date: 20110407
  Receipt Date: 20110331
  Transmission Date: 20111010
  Serious: Yes (Other)
  Sender: FDA-Public Use
  Company Number: BR-ELI_LILLY_AND_COMPANY-BR201103006557

PATIENT
  Age: 17 Year
  Sex: Male

DRUGS (3)
  1. HUMALOG MIX 75/25 [Suspect]
     Indication: TYPE 1 DIABETES MELLITUS
     Dosage: UNK IU, UNKNOWN
     Dates: start: 19990101
  2. CAPTOPRIL [Concomitant]
     Indication: RENAL DISORDER
     Dosage: UNK, UNKNOWN
     Route: 065
     Dates: start: 19990101
  3. HUMALOG MIX 75/25 [Suspect]
     Dosage: 85 IU, QD
     Route: 058
     Dates: start: 20100101

REACTIONS (5)
  - HYPERGLYCAEMIA [None]
  - CONVULSION [None]
  - TREMOR [None]
  - HYPOGLYCAEMIA [None]
  - CONFUSIONAL STATE [None]
